FAERS Safety Report 7210625-6 (Version None)
Quarter: 2010Q4

REPORT INFORMATION
  Report Type: 
  Country: None (occurrence: None)
  Receive Date: 20101126
  Receipt Date: 20101005
  Transmission Date: 20110411
  Serious: No
  Sender: FDA-Public Use
  Company Number: 316025

PATIENT
  Age: 62 Year
  Sex: Male
  Weight: 78 kg

DRUGS (9)
  1. VICTOZA [Suspect]
     Indication: TYPE 2 DIABETES MELLITUS
     Dosage: 1.8 U, QD, SUBCUTANEOUS
     Route: 058
  2. LEVEMIR [Concomitant]
  3. BENICAR [Concomitant]
  4. TRENTAL [Concomitant]
  5. METANX (CALCIUM MEFOLINATE, PYRIDOXINE HYDROCHLORIDE, VITAMIN B12 NOS) [Concomitant]
  6. LOVAZA (OMEGA-3 MARINE TRIGLYERCIDES) [Concomitant]
  7. WELCHOL [Concomitant]
  8. NIASPAN [Concomitant]
  9. TERBINAFINE HCL [Concomitant]

REACTIONS (3)
  - CONSTIPATION [None]
  - GASTROINTESTINAL TRACT IRRITATION [None]
  - PANCREATIC ENZYMES INCREASED [None]
